FAERS Safety Report 5688456-8 (Version None)
Quarter: 2008Q1

REPORT INFORMATION
  Report Type: 
  Country: None (occurrence: None)
  Receive Date: 20080331
  Receipt Date: 20080227
  Transmission Date: 20080703
  Serious: No
  Sender: FDA-Public Use
  Company Number: US-BAYER-200815460NA

PATIENT
  Sex: Female

DRUGS (1)
  1. CIPRO [Suspect]
     Indication: PSEUDOMONAS INFECTION
     Dosage: UNIT DOSE: 500 MG
     Route: 048
     Dates: start: 20070501

REACTIONS (2)
  - GASTROOESOPHAGEAL REFLUX DISEASE [None]
  - NAUSEA [None]
